FAERS Safety Report 5952173-7 (Version None)
Quarter: 2008Q4

REPORT INFORMATION
  Report Type: 
  Country: None (occurrence: None)
  Receive Date: 20081113
  Receipt Date: 20080807
  Transmission Date: 20090506
  Serious: No
  Sender: FDA-Public Use
  Company Number: A0741554A

PATIENT
  Age: 46 Year
  Sex: Male

DRUGS (12)
  1. COREG [Suspect]
     Dosage: 25MG TWICE PER DAY
     Route: 048
     Dates: start: 20040101
  2. COREG CR [Suspect]
     Dosage: 80MG PER DAY
     Route: 048
     Dates: start: 20070601
  3. DIGITEK [Suspect]
     Dosage: .25MG PER DAY
     Dates: start: 20030101, end: 20080601
  4. LANOXIN [Concomitant]
  5. LISINOPRIL [Concomitant]
  6. LASIX [Concomitant]
  7. NEXIUM [Concomitant]
  8. PROVENTIL GENTLEHALER [Concomitant]
  9. LEXAPRO [Concomitant]
  10. ASPIRIN [Concomitant]
  11. OXYMORPHONE HCL [Concomitant]
  12. LIPITOR [Concomitant]

REACTIONS (6)
  - BLOOD PRESSURE INCREASED [None]
  - CARDIOACTIVE DRUG LEVEL [None]
  - CHEST PAIN [None]
  - DYSPNOEA [None]
  - ELECTROCARDIOGRAM ABNORMAL [None]
  - FATIGUE [None]
